FAERS Safety Report 10793906 (Version 1)
Quarter: 2015Q1

REPORT INFORMATION
  Report Type: Spontaneous
  Country: US (occurrence: US)
  Receive Date: 20150213
  Receipt Date: 20150213
  Transmission Date: 20150721
  Serious: Yes (Hospitalization)
  Sender: FDA-Public Use
  Company Number: US-UNITED THERAPEUTICS-UNT-2015-001467

PATIENT
  Age: 46 Year
  Sex: Female
  Weight: 72.56 kg

DRUGS (2)
  1. REMODULIN [Suspect]
     Active Substance: TREPROSTINIL
     Indication: PULMONARY HYPERTENSION
     Dosage: 0.0595 ?G/KG, CONTINUING
     Route: 041
     Dates: start: 20120518
  2. WARFARIN [Concomitant]
     Active Substance: WARFARIN
     Indication: PRODUCT USED FOR UNKNOWN INDICATION

REACTIONS (4)
  - Dehydration [Unknown]
  - Blood pressure decreased [Unknown]
  - Therapy cessation [Unknown]
  - Chest pain [Unknown]

NARRATIVE: CASE EVENT DATE: 201501
